FAERS Safety Report 8522064-6 (Version None)
Quarter: 2012Q3

REPORT INFORMATION
  Report Type: 
  Country: None (occurrence: None)
  Receive Date: 20120719
  Receipt Date: 20120629
  Transmission Date: 20120928
  Serious: Yes (Hospitalization, Other)
  Sender: FDA-Public Use
  Company Number: US-009507513-1105USA02745

PATIENT

DRUGS (2)
  1. FOSAMAX [Suspect]
     Indication: OSTEOPENIA
     Dosage: 70 MG, UNK
     Route: 048
     Dates: start: 20021213, end: 20080303
  2. FOSAMAX [Suspect]
     Dosage: 70 MG, UNK
     Route: 048
     Dates: start: 20081017, end: 20090701

REACTIONS (32)
  - LOW TURNOVER OSTEOPATHY [None]
  - GASTROOESOPHAGEAL REFLUX DISEASE [None]
  - MICTURITION URGENCY [None]
  - GASTRITIS [None]
  - POST PROCEDURAL COMPLICATION [None]
  - BONE LOSS [None]
  - FOREIGN BODY [None]
  - ACUTE RESPIRATORY FAILURE [None]
  - ACUTE SINUSITIS [None]
  - FALL [None]
  - PULPITIS DENTAL [None]
  - DECREASED APPETITE [None]
  - COMA [None]
  - PULMONARY FIBROSIS [None]
  - BLOOD IRON DECREASED [None]
  - ILIOTIBIAL BAND SYNDROME [None]
  - ABDOMINAL PAIN [None]
  - ORTHOSTATIC HYPOTENSION [None]
  - CHRONIC OBSTRUCTIVE PULMONARY DISEASE [None]
  - NECK PAIN [None]
  - JOINT CONTRACTURE [None]
  - FEMUR FRACTURE [None]
  - TOOTH DISORDER [None]
  - GINGIVAL DISORDER [None]
  - OSTEOARTHRITIS [None]
  - CHRONIC RESPIRATORY FAILURE [None]
  - ARTHROPATHY [None]
  - AMNESIA [None]
  - HYPERLIPIDAEMIA [None]
  - TOOTH FRACTURE [None]
  - WEIGHT DECREASED [None]
  - MUSCLE SPASMS [None]
